FAERS Safety Report 21570351 (Version 1)
Quarter: 2022Q4

REPORT INFORMATION
  Report Type: Spontaneous
  Country: JP (occurrence: JP)
  Receive Date: 20221109
  Receipt Date: 20221109
  Transmission Date: 20230112
  Serious: Yes (Disabling)
  Sender: FDA-Public Use
  Company Number: ALC2022JP003431

PATIENT
  Age: 77 Year
  Sex: Female

DRUGS (2)
  1. BSS PLUS [Suspect]
     Active Substance: CALCIUM CHLORIDE\DEXTROSE\MAGNESIUM CHLORIDE\OXIGLUTATIONE\POTASSIUM CHLORIDE\SODIUM BICARBONATE\SOD
     Indication: Vitrectomy
     Dosage: UNK
     Route: 065
  2. EPINEPHRINE HYDROCHLORIDE [Suspect]
     Active Substance: EPINEPHRINE HYDROCHLORIDE
     Indication: Vitrectomy
     Dosage: UNK
     Route: 065

REACTIONS (7)
  - Foreign body in eye [Not Recovered/Not Resolved]
  - Visual acuity reduced [Not Recovered/Not Resolved]
  - Fundoscopy abnormal [Not Recovered/Not Resolved]
  - Retinogram abnormal [Not Recovered/Not Resolved]
  - Product colour issue [Unknown]
  - Wrong technique in product usage process [Unknown]
  - Product container issue [Unknown]

NARRATIVE: CASE EVENT DATE: 20220714
